FAERS Safety Report 8284538 (Version 2)
Quarter: 2012Q4

REPORT INFORMATION
  Report Type: 
  Country: US (occurrence: US)
  Receive Date: 20111212
  Receipt Date: 20121213
  Transmission Date: 20130627
  Serious: Yes (Other)
  Sender: FDA-Public Use
  Company Number: US-BRISTOL-MYERS SQUIBB COMPANY-16135311

PATIENT
  Age: 68 Year
  Sex: Female

DRUGS (2)
  1. IXEMPRA [Suspect]
     Indication: BREAST CANCER METASTATIC
     Dosage: 2 or 3 doses,4th line of Chemo 1st dose with xeloda
     Route: 042
     Dates: start: 20110127, end: 20110623
  2. XELODA [Suspect]
     Indication: BREAST CANCER METASTATIC
     Dosage: 4th line of Chemo 1st dose with Ixempra
     Route: 048
     Dates: start: 20110321

REACTIONS (1)
  - Neuropathy peripheral [Unknown]
